FAERS Safety Report 13783310 (Version 1)
Quarter: 2017Q3

REPORT INFORMATION
  Report Type: Spontaneous
  Country: GB (occurrence: GB)
  Receive Date: 20170724
  Receipt Date: 20170724
  Transmission Date: 20171127
  Serious: Yes (Other)
  Sender: FDA-Public Use
  Company Number: GB-PFIZER INC-418911

PATIENT
  Age: 73 Year
  Sex: Female
  Weight: 80 kg

DRUGS (9)
  1. ALFACALCIDOL [Concomitant]
     Active Substance: ALFACALCIDOL
     Dosage: 1UG TWICE A DAY
  2. ASPIRIN /00002701/ [Concomitant]
     Active Substance: ASPIRIN
     Dosage: 75 MG, 1 IN A DAY
     Route: 002
  3. BENDROFLUMETHIAZIDE [Concomitant]
     Active Substance: BENDROFLUMETHIAZIDE
     Dosage: 2.5 MG, FREQ:1 DAY
  4. VITAMINS /00067501/ [Concomitant]
     Active Substance: VITAMINS
     Dosage: 1 DF, FREQ:1 DAY
     Route: 002
  5. FERROUS FUMARATE [Concomitant]
     Active Substance: FERROUS FUMARATE
     Dosage: 140 MG, FREQ:2 DAY
  6. ERYTHROMYCIN. [Suspect]
     Active Substance: ERYTHROMYCIN
     Dosage: 250 MG, 4 IN1 DAY
     Route: 002
     Dates: start: 20060807, end: 20060811
  7. AMLODIPINE [Concomitant]
     Active Substance: AMLODIPINE BESYLATE
     Dosage: 5 MG, 1 IN A DAY
     Route: 002
  8. SIMVASTATIN. [Concomitant]
     Active Substance: SIMVASTATIN
     Dosage: 40 MG, FREQ:1 DAY
     Route: 002
  9. SANDOCAL 1000 [Concomitant]
     Dosage: 1 DF, FREQ:2 DAY
     Route: 002

REACTIONS (3)
  - Blister [Not Recovered/Not Resolved]
  - Diarrhoea [Not Recovered/Not Resolved]
  - Vomiting [Not Recovered/Not Resolved]

NARRATIVE: CASE EVENT DATE: 20060809
